FAERS Safety Report 24075939 (Version 1)
Quarter: 2024Q3

REPORT INFORMATION
  Report Type: Spontaneous
  Country: CN (occurrence: CN)
  Receive Date: 20240710
  Receipt Date: 20240710
  Transmission Date: 20241017
  Serious: Yes (Hospitalization, Disabling, Other)
  Sender: MERCK
  Company Number: CN-009507513-2407CHN001907

PATIENT
  Age: 64 Year
  Sex: Male
  Weight: 60 kg

DRUGS (2)
  1. CILASTATIN SODIUM\IMIPENEM [Suspect]
     Active Substance: CILASTATIN SODIUM\IMIPENEM
     Indication: Skin laceration
     Dosage: 1 G, Q8H
     Route: 041
     Dates: start: 20240617, end: 20240624
  2. AMBROXOL HYDROCHLORIDE [Concomitant]
     Active Substance: AMBROXOL HYDROCHLORIDE
     Indication: Increased viscosity of bronchial secretion
     Dosage: 30 MG, BID
     Route: 041
     Dates: start: 20240614, end: 20240624

REACTIONS (2)
  - Drug-induced liver injury [Recovering/Resolving]
  - Craniocerebral injury [Unknown]

NARRATIVE: CASE EVENT DATE: 20240621
